FAERS Safety Report 9943229 (Version 1)
Quarter: 2014Q1

REPORT INFORMATION
  Report Type: Spontaneous
  Country: FR (occurrence: FR)
  Receive Date: 20140303
  Receipt Date: 20140303
  Transmission Date: 20141002
  Serious: Yes (Life-Threatening, Hospitalization)
  Sender: FDA-Public Use
  Company Number: FR-GLAXOSMITHKLINE-B0972213A

PATIENT
  Age: 88 Year
  Sex: Female

DRUGS (7)
  1. ARIXTRA [Suspect]
     Indication: THROMBOPHLEBITIS SUPERFICIAL
     Dosage: 7.5MG PER DAY
     Route: 058
     Dates: start: 20140107, end: 20140111
  2. FENOFIBRATE [Concomitant]
     Route: 065
  3. ALFUZOSINE [Concomitant]
     Route: 065
  4. OMEPRAZOLE [Concomitant]
     Route: 065
  5. DIOSMINE [Concomitant]
     Route: 065
  6. PARACETAMOL [Concomitant]
     Route: 065
  7. CALCIDOSE [Concomitant]
     Route: 065

REACTIONS (6)
  - Muscle haemorrhage [Recovered/Resolved with Sequelae]
  - Anaemia [Recovering/Resolving]
  - Asthenia [Recovering/Resolving]
  - Pallor [Recovering/Resolving]
  - Incorrect dose administered [Unknown]
  - Contraindication to medical treatment [Unknown]
